FAERS Safety Report 6626897-2 (Version None)
Quarter: 2010Q1

REPORT INFORMATION
  Report Type: 
  Country: None (occurrence: None)
  Receive Date: 20100311
  Receipt Date: 20100304
  Transmission Date: 20100710
  Serious: Yes (Other)
  Sender: FDA-Public Use
  Company Number: US-RB-004442-10

PATIENT
  Age: 60 Year
  Sex: Male

DRUGS (1)
  1. MUCINEX [Suspect]
     Dosage: TOOK ONE PILL AND TOOK ANOTHER 14 HOURS LATER
     Route: 048
     Dates: start: 20100301

REACTIONS (2)
  - BLOOD PRESSURE INCREASED [None]
  - HEADACHE [None]
